FAERS Safety Report 7647632-5 (Version None)
Quarter: 2011Q3

REPORT INFORMATION
  Report Type: 
  Country: None (occurrence: None)
  Receive Date: 20110726
  Receipt Date: 20110715
  Transmission Date: 20111222
  Serious: Yes (Hospitalization)
  Sender: FDA-Public Use
  Company Number: TCI2011A03987

PATIENT
  Age: 66 Year
  Sex: Male

DRUGS (12)
  1. ASPIRIN [Concomitant]
  2. ACTOS [Suspect]
     Indication: DIABETES MELLITUS
     Dosage: 15 MG (15 MG, 1 D) PER ORAL; 15 MG (15 MG, 1 D) PER ORAL
     Route: 048
     Dates: start: 19600101, end: 19960101
  3. ACTOS [Suspect]
     Indication: DIABETES MELLITUS
     Dosage: 15 MG (15 MG, 1 D) PER ORAL; 15 MG (15 MG, 1 D) PER ORAL
     Route: 048
     Dates: start: 20081210, end: 20110622
  4. NU-LOTAN (LOARTAN POTASSIUM) [Concomitant]
  5. KINEDAK (EPALRESTAT) [Concomitant]
  6. FAMOTIDINE [Concomitant]
  7. EPADEL (ETHYL ICOSAPENTATE) [Concomitant]
  8. DIGOXIN [Concomitant]
  9. LENDORM [Concomitant]
  10. RYTHMODAN R (DISOPYRAMIDE PHOSPHATE) [Concomitant]
  11. SIGMART (NICORANDIL) [Concomitant]
  12. INSULIN HUMAN [Concomitant]

REACTIONS (1)
  - BLADDER TRANSITIONAL CELL CARCINOMA [None]
